FAERS Safety Report 5714359-6 (Version None)
Quarter: 2008Q2

REPORT INFORMATION
  Report Type: 
  Country: None (occurrence: None)
  Receive Date: 20080423
  Receipt Date: 20080418
  Transmission Date: 20081010
  Serious: Yes (Disabling)
  Sender: FDA-Public Use
  Company Number: IT-JNJFOC-20080404126

PATIENT
  Sex: Female

DRUGS (2)
  1. HALDOL [Suspect]
     Indication: HALLUCINATION
     Route: 048
  2. ENTUMIN [Suspect]
     Indication: DRUG USE FOR UNKNOWN INDICATION

REACTIONS (2)
  - BEDRIDDEN [None]
  - PARKINSONISM [None]
